APPROVED DRUG PRODUCT: ICLUSIG
Active Ingredient: PONATINIB HYDROCHLORIDE
Strength: EQ 30MG BASE
Dosage Form/Route: TABLET;ORAL
Application: N203469 | Product #003
Applicant: TAKEDA PHARMACEUTICALS USA INC
Approved: Apr 23, 2015 | RLD: Yes | RS: No | Type: RX

PATENTS:
Patent 9029533 | Expires: Dec 22, 2026
Patent 9029533 | Expires: Dec 22, 2026
Patent 9493470 | Expires: Dec 12, 2033
Patent 9493470 | Expires: Dec 12, 2033
Patent 9029533 | Expires: Dec 22, 2026
Patent 9029533 | Expires: Dec 22, 2026
Patent 9029533 | Expires: Dec 22, 2026
Patent 11384086 | Expires: Dec 12, 2033
Patent 11384086 | Expires: Dec 12, 2033
Patent 11384086 | Expires: Dec 12, 2033
Patent 11192897 | Expires: Dec 12, 2033
Patent 11192897 | Expires: Dec 12, 2033
Patent 11192897 | Expires: Dec 12, 2033
Patent 11192895 | Expires: Dec 12, 2033
Patent 11192895 | Expires: Dec 12, 2033
Patent 11192895 | Expires: Dec 12, 2033
Patent 8114874 | Expires: Jan 24, 2027

EXCLUSIVITY:
Code: I-934 | Date: Mar 19, 2027
Code: ODE-472 | Date: Mar 19, 2031